FAERS Safety Report 6341652-9 (Version None)
Quarter: 2009Q3

REPORT INFORMATION
  Report Type: 
  Country: None (occurrence: None)
  Receive Date: 20090902
  Receipt Date: 20090902
  Transmission Date: 20100115
  Serious: Yes (Other)
  Sender: FDA-Public Use
  Company Number: None

PATIENT
  Sex: Male
  Weight: 90.7194 kg

DRUGS (1)
  1. TASIGNA [Suspect]
     Indication: CHRONIC MYELOID LEUKAEMIA
     Dosage: 2 CAPS BID PO
     Route: 048
     Dates: start: 20090701, end: 20090830

REACTIONS (3)
  - INFLAMMATION [None]
  - PANCREATITIS [None]
  - PERICARDITIS [None]
